FAERS Safety Report 8979149 (Version 1)
Quarter: 2012Q4

REPORT INFORMATION
  Report Type: 
  Country: US (occurrence: US)
  Receive Date: 20121221
  Receipt Date: 20121221
  Transmission Date: 20130627
  Serious: Yes (Other)
  Sender: FDA-Public Use
  Company Number: US-GLAXOSMITHKLINE-A1006077A

PATIENT
  Age: 60 Year
  Sex: Male

DRUGS (6)
  1. CARVEDILOL [Suspect]
     Indication: TACHYCARDIA
     Dosage: 6.25MG Twice per day
     Route: 048
     Dates: start: 20121115, end: 20121218
  2. ZANTAC 150MG [Concomitant]
  3. T4 [Concomitant]
  4. T3 [Concomitant]
  5. ANDROGEL [Concomitant]
  6. BABY ASPIRIN [Concomitant]

REACTIONS (2)
  - Hypoacusis [Recovering/Resolving]
  - Tinnitus [Recovered/Resolved]
